FAERS Safety Report 9198614 (Version 2)
Quarter: 2013Q2

REPORT INFORMATION
  Report Type: Spontaneous
  Country: US (occurrence: US)
  Receive Date: 20130329
  Receipt Date: 20130419
  Transmission Date: 20140414
  Serious: Yes (Other)
  Sender: FDA-Public Use
  Company Number: US-JNJFOC-20130314716

PATIENT
  Age: 65 Year
  Sex: Female

DRUGS (8)
  1. REMICADE [Suspect]
     Indication: RHEUMATOID ARTHRITIS
     Route: 042
     Dates: start: 20120127, end: 20130204
  2. METHOTREXATE [Suspect]
     Indication: RHEUMATOID ARTHRITIS
     Dosage: STARTED SINCE BEFORE 2005
     Route: 065
     Dates: end: 201211
  3. METHOTREXATE [Suspect]
     Indication: RHEUMATOID ARTHRITIS
     Dosage: STARTED SINCE BEFORE 2005
     Route: 065
     Dates: start: 1998, end: 20121008
  4. RELAFEN [Concomitant]
     Indication: OSTEOARTHRITIS
     Dosage: 750 TO 1500 MG/D
     Route: 065
     Dates: start: 200508, end: 201301
  5. RELAFEN [Concomitant]
     Indication: RHEUMATOID ARTHRITIS
     Dosage: 750 TO 1500 MG/D
     Route: 065
     Dates: start: 200508, end: 201301
  6. SYNTHROID [Concomitant]
     Indication: THYROID DISORDER
     Route: 065
  7. RANITIDINE [Concomitant]
     Indication: GASTRITIS
     Route: 065
  8. NORVASC [Concomitant]
     Indication: BLOOD PRESSURE
     Route: 065
     Dates: start: 201209

REACTIONS (2)
  - Lupus-like syndrome [Unknown]
  - Autoimmune hepatitis [Recovering/Resolving]
